FAERS Safety Report 7289166-6 (Version None)
Quarter: 2011Q1

REPORT INFORMATION
  Report Type: 
  Country: None (occurrence: None)
  Receive Date: 20110211
  Receipt Date: 20110201
  Transmission Date: 20110831
  Serious: Yes (Other)
  Sender: FDA-Public Use
  Company Number: CH-JNJFOC-20110200085

PATIENT
  Age: 4 Year
  Sex: Female

DRUGS (2)
  1. TOPAMAX [Suspect]
     Indication: INFANTILE SPASMS
     Route: 048
  2. TOPAMAX [Suspect]
     Dosage: SOLUTION PREPARED BY RETAIL PHARMACIST VIA COLON-ILEO STOMA
     Route: 048

REACTIONS (4)
  - PERIPHERAL COLDNESS [None]
  - DRUG INEFFECTIVE [None]
  - EAR INFECTION [None]
  - INCORRECT DRUG DOSAGE FORM ADMINISTERED [None]
